FAERS Safety Report 7647999-8 (Version None)
Quarter: 2011Q3

REPORT INFORMATION
  Report Type: 
  Country: None (occurrence: None)
  Receive Date: 20110801
  Receipt Date: 20110722
  Transmission Date: 20111222
  Serious: Yes (Other)
  Sender: FDA-Public Use
  Company Number: CN-ASTRAZENECA-2011SE41715

PATIENT
  Age: 51 Year
  Sex: Female

DRUGS (3)
  1. IRESSA [Suspect]
     Indication: LUNG ADENOCARCINOMA METASTATIC
     Route: 048
     Dates: start: 20110201
  2. POLYENE PHOSPHATIDYLCHOLINE [Concomitant]
     Indication: PROPHYLAXIS
  3. IRESSA [Suspect]
     Route: 048

REACTIONS (1)
  - LIVER INJURY [None]
